FAERS Safety Report 11043593 (Version 1)
Quarter: 2015Q2

REPORT INFORMATION
  Report Type: Spontaneous
  Country: VI (occurrence: None)
  Receive Date: 20150416
  Receipt Date: 20150416
  Transmission Date: 20150821
  Serious: No
  Sender: FDA-Public Use
  Company Number: None

PATIENT
  Age: 24 Year
  Sex: Female
  Weight: 50 kg

DRUGS (2)
  1. YASMIN BIRTH CONTROL PILL [Concomitant]
  2. MOXIFLOXACIN [Suspect]
     Active Substance: MOXIFLOXACIN
     Indication: UREAPLASMA INFECTION
     Dosage: 5 ONCE DAILY
     Route: 048
     Dates: start: 20150414, end: 20150415

REACTIONS (18)
  - Pain [None]
  - Swelling face [None]
  - Speech disorder [None]
  - Paraesthesia [None]
  - Throat irritation [None]
  - Panic attack [None]
  - Myalgia [None]
  - Pruritus [None]
  - Dizziness [None]
  - Rash pruritic [None]
  - Suicidal ideation [None]
  - Mental impairment [None]
  - Anxiety [None]
  - Headache [None]
  - Toothache [None]
  - Nasal discomfort [None]
  - Disorientation [None]
  - Fatigue [None]

NARRATIVE: CASE EVENT DATE: 20150415
